FAERS Safety Report 4278950-9 (Version None)
Quarter: 2004Q1

REPORT INFORMATION
  Report Type: 
  Country: None (occurrence: None)
  Receive Date: 20040126
  Receipt Date: 20031120
  Transmission Date: 20041129
  Serious: Yes (Death)
  Sender: FDA-Public Use
  Company Number: US-ROCHE-352424

PATIENT
  Age: 77 Year
  Sex: Male

DRUGS (18)
  1. DACLIZUMAB [Suspect]
     Route: 042
  2. MYCOPHENOLATE MOFETIL [Suspect]
     Route: 048
     Dates: end: 20010303
  3. PROGRAF [Suspect]
     Dosage: 2 MG QAM, 3 MG QPM.
     Route: 048
  4. PROGRAF [Suspect]
     Route: 048
  5. PREDNISONE [Suspect]
     Route: 048
     Dates: end: 20010304
  6. MAGNESIUM OXIDE [Concomitant]
  7. GCV [Concomitant]
  8. BACTRIM [Concomitant]
  9. NYSTATIN [Concomitant]
     Dosage: TAKEN AS 'SWISH AND SWALLOW'.
  10. AMITRIPTYLINE [Concomitant]
  11. ASPIRIN [Concomitant]
  12. COLCHICINE [Concomitant]
  13. DOCUSATE [Concomitant]
     Route: 048
  14. METOPROLOL [Concomitant]
  15. HYTRIN [Concomitant]
  16. PYRIDIUM [Concomitant]
  17. PRILOSEC [Concomitant]
  18. LASIX [Concomitant]

REACTIONS (45)
  - ACQUIRED CARDIAC SEPTAL DEFECT [None]
  - ALANINE AMINOTRANSFERASE INCREASED [None]
  - ANAEMIA [None]
  - ANGINA PECTORIS [None]
  - AORTIC VALVE CALCIFICATION [None]
  - ATRIAL FLUTTER [None]
  - ATRIOVENTRICULAR BLOCK FIRST DEGREE [None]
  - BLISTER [None]
  - BRADYCARDIA [None]
  - BUNDLE BRANCH BLOCK RIGHT [None]
  - CARDIAC FAILURE CONGESTIVE [None]
  - CARDIO-RESPIRATORY ARREST [None]
  - CELLULITIS [None]
  - CEREBRAL ISCHAEMIA [None]
  - CEREBROVASCULAR ACCIDENT [None]
  - CONFUSIONAL STATE [None]
  - CORONARY ARTERY DISEASE [None]
  - CORONARY ARTERY STENOSIS [None]
  - DELIRIUM [None]
  - DILATATION ATRIAL [None]
  - DRUG LEVEL DECREASED [None]
  - DRUG TOXICITY [None]
  - ENCEPHALOPATHY [None]
  - ENTEROCOCCAL SEPSIS [None]
  - HAEMATOMA [None]
  - HAEMODIALYSIS [None]
  - HAEMORRHAGE [None]
  - HYPOXIA [None]
  - INCREASED BRONCHIAL SECRETION [None]
  - MOUTH HAEMORRHAGE [None]
  - MYOCARDIAL INFARCTION [None]
  - PAIN IN EXTREMITY [None]
  - PSEUDOMONAL SEPSIS [None]
  - PULMONARY EMBOLISM [None]
  - PULMONARY HYPERTENSION [None]
  - RENAL FAILURE [None]
  - RENAL FAILURE ACUTE [None]
  - RENAL TUBULAR NECROSIS [None]
  - RESPIRATORY FAILURE [None]
  - SEPSIS [None]
  - SOMNOLENCE [None]
  - THROMBOCYTOPENIA [None]
  - URINARY INCONTINENCE [None]
  - VENTRICULAR DYSFUNCTION [None]
  - WOUND [None]
